FAERS Safety Report 8588572-7 (Version None)
Quarter: 2012Q3

REPORT INFORMATION
  Report Type: 
  Country: None (occurrence: None)
  Receive Date: 20120813
  Receipt Date: 20120801
  Transmission Date: 20120928
  Serious: Yes (Hospitalization)
  Sender: FDA-Public Use
  Company Number: US-NOVOPROD-348972

PATIENT
  Age: 30 Year
  Sex: Female
  Weight: 75.9 kg

DRUGS (2)
  1. NOVOLIN R [Suspect]
     Indication: GESTATIONAL DIABETES
     Dosage: 13 U IN AM AND 10 U IN PM
     Route: 058
     Dates: start: 20120321, end: 20120607
  2. NOVOLIN N [Suspect]
     Dosage: 25 U IN AM, 10 U IN PM
     Route: 058
     Dates: start: 20120321, end: 20120607

REACTIONS (2)
  - MATERNAL EXPOSURE DURING PREGNANCY [None]
  - FAILED INDUCTION OF LABOUR [None]
